FAERS Safety Report 25684593 (Version 5)
Quarter: 2025Q4

REPORT INFORMATION
  Report Type: Spontaneous
  Country: US (occurrence: US)
  Receive Date: 20250815
  Receipt Date: 20251007
  Transmission Date: 20260118
  Serious: No
  Sender: ROCHE
  Company Number: US-ROCHE-10000356098

PATIENT
  Sex: Female
  Weight: 58.06 kg

DRUGS (6)
  1. LUCENTIS [Suspect]
     Active Substance: RANIBIZUMAB
     Indication: Neovascular age-related macular degeneration
     Route: 050
     Dates: start: 20240703
  2. VABYSMO [Suspect]
     Active Substance: FARICIMAB-SVOA
     Indication: Neovascular age-related macular degeneration
     Route: 050
     Dates: start: 2023
  3. VABYSMO [Suspect]
     Active Substance: FARICIMAB-SVOA
  4. VABYSMO [Suspect]
     Active Substance: FARICIMAB-SVOA
  5. VABYSMO [Suspect]
     Active Substance: FARICIMAB-SVOA
  6. EYLEA [Concomitant]
     Active Substance: AFLIBERCEPT
     Dosage: LEFT EYE EVERY 4 TO 6 WEEKS

REACTIONS (4)
  - Off label use [Unknown]
  - Body height decreased [Unknown]
  - Haematoma [Unknown]
  - Off label use [Unknown]
